FAERS Safety Report 4684520-0 (Version None)
Quarter: 2005Q2

REPORT INFORMATION
  Report Type: 
  Country: None (occurrence: None)
  Receive Date: 20050603
  Receipt Date: 20050523
  Transmission Date: 20051028
  Serious: Yes (Life-Threatening)
  Sender: FDA-Public Use
  Company Number: USA-2005-0018845

PATIENT
  Age: 49 Year
  Sex: Male

DRUGS (1)
  1. OXYCONTIN [Suspect]
     Indication: PAIN
     Dosage: 40 MG, SEE TEXT; ORAL
     Route: 048

REACTIONS (4)
  - COMA [None]
  - INADEQUATE ANALGESIA [None]
  - MEDICATION ERROR [None]
  - OVERDOSE [None]
